FAERS Safety Report 14685767 (Version 1)
Quarter: 2018Q1

REPORT INFORMATION
  Report Type: Spontaneous
  Country: UA (occurrence: UA)
  Receive Date: 20180327
  Receipt Date: 20180327
  Transmission Date: 20180509
  Serious: Yes (Other)
  Sender: FDA-Public Use
  Company Number: UA-ASTRAZENECA-2018SE36239

PATIENT
  Sex: Male

DRUGS (5)
  1. BRILINTA [Suspect]
     Active Substance: TICAGRELOR
     Dosage: 180.0MG UNKNOWN
     Route: 048
     Dates: start: 20180316
  2. ACETYLSALICYLIC ACID [Suspect]
     Active Substance: ASPIRIN
     Dosage: 300
     Route: 065
     Dates: start: 20180315
  3. HEPARIN [Suspect]
     Active Substance: HEPARIN SODIUM
     Dosage: 10000
     Route: 065
     Dates: start: 20180316, end: 20180316
  4. CLOPIDOGREL [Suspect]
     Active Substance: CLOPIDOGREL BISULFATE
     Dosage: 225.0MG UNKNOWN
     Route: 065
     Dates: start: 20180316, end: 20180316
  5. ARIXTRA [Suspect]
     Active Substance: FONDAPARINUX SODIUM
     Route: 065
     Dates: start: 20180316

REACTIONS (1)
  - Vascular stent thrombosis [Unknown]

NARRATIVE: CASE EVENT DATE: 20180316
